FAERS Safety Report 23982122 (Version 1)
Quarter: 2024Q2

REPORT INFORMATION
  Report Type: Spontaneous
  Country: US (occurrence: US)
  Receive Date: 20240617
  Receipt Date: 20240617
  Transmission Date: 20240716
  Serious: Yes (Other)
  Sender: FDA-Public Use
  Company Number: US-BRISTOL-MYERS SQUIBB COMPANY-2024-095096

PATIENT
  Age: 52 Year
  Sex: Male
  Weight: 98.29 kg

DRUGS (1)
  1. REVLIMID [Suspect]
     Active Substance: LENALIDOMIDE
     Indication: Plasma cell myeloma
     Dosage: FREQUENCY: DAILY ON DAYS 1-14 EVERY 21 DAYS
     Route: 048
     Dates: start: 20240117

REACTIONS (2)
  - Plasma cell myeloma [Unknown]
  - Therapy non-responder [Unknown]
